FAERS Safety Report 23795801 (Version 2)
Quarter: 2024Q2

REPORT INFORMATION
  Report Type: Spontaneous
  Country: US (occurrence: US)
  Receive Date: 20240429
  Receipt Date: 20240430
  Transmission Date: 20240715
  Serious: Yes (Other)
  Sender: FDA-Public Use
  Company Number: US-PURDUE PHARMA-USA-2024-0309351

PATIENT

DRUGS (2)
  1. BUPRENORPHINE [Suspect]
     Active Substance: BUPRENORPHINE
     Indication: Product used for unknown indication
     Dosage: 20MCG PATCHES FOR 2 YEARS
     Route: 062
  2. BUPRENORPHINE [Suspect]
     Active Substance: BUPRENORPHINE
     Dosage: UNK
     Route: 062
     Dates: start: 20240112

REACTIONS (4)
  - Accidental overdose [Unknown]
  - Device malfunction [Unknown]
  - Device delivery system issue [Unknown]
  - Dizziness [Unknown]

NARRATIVE: CASE EVENT DATE: 20240112
